FAERS Safety Report 10555359 (Version 3)
Quarter: 2015Q1

REPORT INFORMATION
  Report Type: Report from Study
  Country: CA (occurrence: CA)
  Receive Date: 20141030
  Receipt Date: 20150107
  Transmission Date: 20150720
  Serious: Yes (Death, Life-Threatening, Hospitalization)
  Sender: FDA-Public Use
  Company Number: CA-009507513-1410CAN013133

PATIENT
  Age: 19 Year
  Sex: Male

DRUGS (3)
  1. PHENYTOIN. [Concomitant]
     Active Substance: PHENYTOIN
     Indication: CONVULSION PROPHYLAXIS
     Dosage: 400 MG, HS (REPORTED AS QHS)
     Route: 048
     Dates: start: 20140521, end: 20140724
  2. PEMBROLIZUMAB. [Suspect]
     Active Substance: PEMBROLIZUMAB
     Indication: METASTATIC MALIGNANT MELANOMA
     Dosage: 2 MG/KG, ONCE
     Route: 042
     Dates: start: 20140617, end: 20140708
  3. HYDROMORPHONE [Concomitant]
     Active Substance: HYDROMORPHONE
     Indication: PAIN
     Dosage: TOTAL DAILY DOSE: 12-18 MG, BID
     Route: 048
     Dates: start: 20140521, end: 20140724

REACTIONS (6)
  - Hyperlipasaemia [Unknown]
  - Lipase increased [Unknown]
  - Pyrexia [Recovered/Resolved]
  - Malignant neoplasm progression [Fatal]
  - Diarrhoea [Recovered/Resolved]
  - Anaemia [Unknown]

NARRATIVE: CASE EVENT DATE: 20140617
